FAERS Safety Report 11206657 (Version 1)
Quarter: 2015Q2

REPORT INFORMATION
  Report Type: Spontaneous
  Country: CO (occurrence: CO)
  Receive Date: 20150622
  Receipt Date: 20150622
  Transmission Date: 20150821
  Serious: Yes (Death, Other)
  Sender: FDA-Public Use
  Company Number: CO-ASTELLAS-2015US021465

PATIENT
  Age: 41 Year
  Sex: Male

DRUGS (1)
  1. ADVAGRAF [Suspect]
     Active Substance: TACROLIMUS
     Indication: RENAL TRANSPLANT
     Route: 048
     Dates: start: 20140815, end: 2014

REACTIONS (2)
  - Post procedural infection [Fatal]
  - Haemorrhage [Fatal]

NARRATIVE: CASE EVENT DATE: 20141015
